FAERS Safety Report 4604945-9 (Version None)
Quarter: 2005Q1

REPORT INFORMATION
  Report Type: 
  Country: None (occurrence: None)
  Receive Date: 20050311
  Receipt Date: 20050228
  Transmission Date: 20050727
  Serious: Yes (Death)
  Sender: FDA-Public Use
  Company Number: US-JNJFOC-20040800767

PATIENT
  Sex: Male
  Weight: 64.86 kg

DRUGS (15)
  1. DURAGESIC-100 [Suspect]
     Route: 062
  2. DURAGESIC-100 [Suspect]
     Route: 062
  3. ACTIQ [Suspect]
     Route: 060
  4. ACTIQ [Suspect]
     Route: 060
  5. MORPHINE [Suspect]
  6. CATAPRES [Concomitant]
     Route: 062
  7. ZOFRAN [Concomitant]
     Route: 049
  8. NUTRITIONAL SUPPLEMENT NOS [Concomitant]
     Route: 049
  9. L-ARGININE [Concomitant]
     Route: 049
  10. SERTRALINE HCL [Concomitant]
  11. AMLODIPINE [Concomitant]
  12. DOXYCYCLINE HYCLATE [Concomitant]
  13. PANCRELIPASE [Concomitant]
  14. RABEPRAZOLE SODIUM [Concomitant]
  15. DIPROLENE [Concomitant]

REACTIONS (23)
  - CARDIAC ARREST [None]
  - COMA [None]
  - COMPLEX REGIONAL PAIN SYNDROME [None]
  - CORONARY ARTERY ATHEROSCLEROSIS [None]
  - CORONARY ARTERY OCCLUSION [None]
  - CYSTIC FIBROSIS PANCREATIC [None]
  - DRUG SCREEN POSITIVE [None]
  - DRUG TOXICITY [None]
  - GASTROOESOPHAGEAL REFLUX DISEASE [None]
  - HEPATIC ENZYME INCREASED [None]
  - IMPAIRED HEALING [None]
  - MEDICATION ERROR [None]
  - PAIN [None]
  - PANCREATIC PSEUDOCYST [None]
  - RASH [None]
  - RASH GENERALISED [None]
  - SCAR [None]
  - SELF-MEDICATION [None]
  - SKIN ULCER [None]
  - THERAPEUTIC AGENT TOXICITY [None]
  - THERAPEUTIC RESPONSE DECREASED [None]
  - THERMAL BURN [None]
  - VOMITING [None]
